FAERS Safety Report 5252298-8 (Version None)
Quarter: 2007Q1

REPORT INFORMATION
  Report Type: 
  Country: None (occurrence: None)
  Receive Date: 20070301
  Receipt Date: 20060126
  Transmission Date: 20070707
  Serious: Yes (Other)
  Sender: FDA-Public Use
  Company Number: US-BRISTOL-MYERS SQUIBB COMPANY-13260781

PATIENT
  Age: 52 Year
  Sex: Female
  Weight: 65 kg

DRUGS (5)
  1. TAXOL [Suspect]
     Indication: LYMPHOMA
     Route: 042
     Dates: start: 20060124, end: 20060124
  2. RADIATION THERAPY [Concomitant]
  3. MAGNESIUM SUPPLEMENT [Concomitant]
  4. RABEPRAZOLE SODIUM [Concomitant]
  5. HYDROMORPHONE HCL [Concomitant]

REACTIONS (3)
  - MEDICATION ERROR [None]
  - NEUTROPENIA [None]
  - OVERDOSE [None]
